FAERS Safety Report 23303809 (Version 1)
Quarter: 2023Q4

REPORT INFORMATION
  Report Type: Spontaneous
  Country: US (occurrence: US)
  Receive Date: 20231215
  Receipt Date: 20231215
  Transmission Date: 20240110
  Serious: No
  Sender: FDA-Public Use
  Company Number: US-GALDERMA-US2023017308

PATIENT

DRUGS (6)
  1. PROACTIV MD ADAPALENE ACNE TREATMENT [Suspect]
     Active Substance: ADAPALENE
     Indication: Acne
     Dosage: 1 DOSAGE FORM, QOD
     Route: 061
     Dates: start: 202304
  2. PROACTIV MD ADAPALENE ACNE TREATMENT [Suspect]
     Active Substance: ADAPALENE
     Dosage: 1 DOSAGE FORM, TIW
     Route: 061
     Dates: start: 202304
  3. Proactiv MD Ultra Gentle Cleanser [Concomitant]
     Indication: Acne
     Dosage: 1 DOSAGE FORM, QOD
     Route: 061
     Dates: start: 202304
  4. Proactiv MD Ultra Gentle Cleanser [Concomitant]
     Dosage: 1 DOSAGE FORM, TIW
     Route: 061
     Dates: start: 202304
  5. Proactiv MD Ultra Hydrating Moisturizer [Concomitant]
     Indication: Acne
     Dosage: 1 DOSAGE FORM, QOD
     Route: 061
     Dates: start: 202304
  6. Proactiv MD Ultra Hydrating Moisturizer [Concomitant]
     Dosage: 1 DOSAGE FORM, TIW
     Route: 061
     Dates: start: 202304

REACTIONS (4)
  - Dry skin [Unknown]
  - Skin irritation [Unknown]
  - Underdose [Recovered/Resolved]
  - Inappropriate schedule of product administration [Recovered/Resolved]

NARRATIVE: CASE EVENT DATE: 20230101
